FAERS Safety Report 23837606 (Version 1)
Quarter: 2024Q2

REPORT INFORMATION
  Report Type: Spontaneous
  Country: US (occurrence: None)
  Receive Date: 20240508
  Receipt Date: 20240508
  Transmission Date: 20240716
  Serious: Yes (Hospitalization)
  Sender: FDA-Public Use
  Company Number: None

PATIENT
  Sex: Male

DRUGS (3)
  1. OPSUMIT [Suspect]
     Active Substance: MACITENTAN
     Indication: Pulmonary arterial hypertension
     Dosage: FREQUENCY : DAILY;?
     Route: 048
     Dates: start: 202401
  2. SILDENAFIL CITRATE [Concomitant]
  3. UPTRAVI (MNTH 1 TITR) [Concomitant]

REACTIONS (4)
  - Fall [None]
  - Faeces soft [None]
  - Pulmonary oedema [None]
  - Frequent bowel movements [None]
